FAERS Safety Report 14534150 (Version 1)
Quarter: 2018Q1

REPORT INFORMATION
  Report Type: Spontaneous
  Country: US (occurrence: US)
  Receive Date: 20180214
  Receipt Date: 20180214
  Transmission Date: 20180509
  Serious: No
  Sender: FDA-Public Use
  Company Number: None

PATIENT
  Age: 69 Year
  Sex: Male

DRUGS (1)
  1. CAPECITABINE  500MG WESTWARD [Suspect]
     Active Substance: CAPECITABINE
     Indication: COLON CANCER
     Dosage: DAILY FOR 14 DAYS ON AND 7 DAYS OFF, THEN
     Route: 048
     Dates: start: 20171115

REACTIONS (2)
  - Palmar-plantar erythrodysaesthesia syndrome [None]
  - Infusion related reaction [None]

NARRATIVE: CASE EVENT DATE: 20180207
